FAERS Safety Report 8493714 (Version 4)
Quarter: 2013Q3

REPORT INFORMATION
  Report Type: Spontaneous
  Country: US (occurrence: US)
  Receive Date: 20120404
  Receipt Date: 20130814
  Transmission Date: 20140515
  Serious: Yes (Other)
  Sender: FDA-Public Use
  Company Number: US-ASTRAZENECA-2012SE20957

PATIENT
  Age: 58 Year
  Sex: Female
  Weight: 78.5 kg

DRUGS (20)
  1. NEXIUM [Suspect]
     Indication: GASTROOESOPHAGEAL REFLUX DISEASE
     Route: 048
     Dates: start: 2001, end: 2010
  2. NEXIUM [Suspect]
     Indication: GASTROOESOPHAGEAL REFLUX DISEASE
     Route: 048
     Dates: start: 2005
  3. NEXIUM [Suspect]
     Indication: GASTROOESOPHAGEAL REFLUX DISEASE
     Route: 048
  4. NEXIUM [Suspect]
     Indication: GASTROOESOPHAGEAL REFLUX DISEASE
     Route: 048
     Dates: start: 2010
  5. NEXIUM [Suspect]
     Indication: GASTROOESOPHAGEAL REFLUX DISEASE
     Route: 048
  6. PRILOSEC OTC [Suspect]
     Route: 048
  7. OMEPRAZOLE MAGNESIUM [Suspect]
     Route: 048
     Dates: start: 20130611
  8. WELLBUTRIN [Concomitant]
     Indication: HOT FLUSH
  9. WELLBUTRIN [Concomitant]
     Indication: DEPRESSION
  10. WELLBUTRIN XL TAB [Concomitant]
     Indication: HOT FLUSH
  11. WELLBUTRIN XL TAB [Concomitant]
     Indication: DEPRESSION
  12. HYDROCHLOROTHIAZIDE [Concomitant]
     Indication: DIURETIC THERAPY
  13. ADVAIR [Concomitant]
     Indication: ASTHMA
     Dosage: 500/50 2 PUFFS DAILY
  14. NEBULIZER [Concomitant]
     Indication: ASTHMA
     Dosage: 3 TIMES A MONTH
  15. POTASSIUM [Concomitant]
     Indication: MINERAL SUPPLEMENTATION
  16. METOPROLOL TARTRATE [Concomitant]
     Indication: BLOOD PRESSURE ABNORMAL
  17. LORTADINE [Concomitant]
     Indication: MULTIPLE ALLERGIES
  18. VITAMIN D [Concomitant]
     Indication: VITAMIN SUPPLEMENTATION
  19. PREVACID [Concomitant]
  20. PEPCID [Concomitant]

REACTIONS (25)
  - Cardiac failure congestive [Unknown]
  - Renal failure chronic [Unknown]
  - Amnesia [Unknown]
  - Asthma [Unknown]
  - Chest pain [Unknown]
  - Dyspnoea [Unknown]
  - Chronic obstructive pulmonary disease [Unknown]
  - Scoliosis [Unknown]
  - Body height decreased [Unknown]
  - Hypertension [Unknown]
  - Blood potassium decreased [Unknown]
  - Muscle spasms [Unknown]
  - Decreased appetite [Unknown]
  - Chest pain [Unknown]
  - Gastroenteritis viral [Unknown]
  - Psychomotor hyperactivity [Unknown]
  - Anxiety [Unknown]
  - Oral discomfort [Unknown]
  - Depression [Unknown]
  - Aphthous stomatitis [Unknown]
  - Nausea [Unknown]
  - Abdominal discomfort [Unknown]
  - Off label use [Unknown]
  - Intentional drug misuse [Unknown]
  - Drug effect decreased [Unknown]
